FAERS Safety Report 19610328 (Version 18)
Quarter: 2022Q4

REPORT INFORMATION
  Report Type: Report from Study
  Country: DE (occurrence: DE)
  Receive Date: 20210726
  Receipt Date: 20221229
  Transmission Date: 20230113
  Serious: Yes (Hospitalization, Other)
  Sender: FDA-Public Use
  Company Number: DE-002147023-NVSC2020DE203547

PATIENT
  Sex: Female
  Weight: 52 kg

DRUGS (16)
  1. LETROZOLE [Suspect]
     Active Substance: LETROZOLE
     Indication: Breast cancer metastatic
     Dosage: 2.5 MILLIGRAM, QD
     Route: 048
     Dates: start: 20200701
  2. LETROZOLE [Suspect]
     Active Substance: LETROZOLE
     Indication: Hypertension
  3. KISQALI [Suspect]
     Active Substance: RIBOCICLIB
     Indication: Breast cancer metastatic
     Dosage: 600 MG, QD (SCHEMA 21D INTAKE, 7D PAUSE)
     Route: 048
     Dates: start: 20200701, end: 20200714
  4. KISQALI [Suspect]
     Active Substance: RIBOCICLIB
     Indication: Hormone receptor positive HER2 negative breast cancer
     Dosage: 400MG, QD (SCHEMA 21D INTAKE, 7D PAUSE)
     Route: 048
     Dates: start: 20200729, end: 20200825
  5. KISQALI [Suspect]
     Active Substance: RIBOCICLIB
     Dosage: 400MG, QD (SCHEMA 21D INTAKE, 7D PAUSE)
     Route: 048
     Dates: start: 20200909, end: 20201103
  6. KISQALI [Suspect]
     Active Substance: RIBOCICLIB
     Dosage: 400MG, QD (SCHEMA 21D INTAKE, 7D PAUSE)
     Route: 048
     Dates: start: 20201110, end: 20201207
  7. KISQALI [Suspect]
     Active Substance: RIBOCICLIB
     Dosage: 400MG, QD (SCHEMA 21D INTAKE, 7D PAUSE)
     Route: 048
     Dates: start: 20201209, end: 20210202
  8. KISQALI [Suspect]
     Active Substance: RIBOCICLIB
     Dosage: 400MG, QD (SCHEMA 21D INTAKE, 7D PAUSE)
     Route: 048
  9. KISQALI [Suspect]
     Active Substance: RIBOCICLIB
     Dosage: 400MG, QD (SCHEMA 21D INTAKE, 7D PAUSE)
     Route: 048
     Dates: start: 20210217, end: 20210928
  10. KISQALI [Suspect]
     Active Substance: RIBOCICLIB
     Dosage: 400MG , QD (SCHEMA 21 DAYS INTAKE, 7 DAYS PAUSE)
     Route: 048
     Dates: start: 20211117, end: 20211214
  11. KISQALI [Suspect]
     Active Substance: RIBOCICLIB
     Dosage: 400 MG, QD (SCHEMA 21 DAYS INTAKE, 7 DAYS PAUSE)
     Route: 048
     Dates: start: 20211222, end: 20220215
  12. KISQALI [Suspect]
     Active Substance: RIBOCICLIB
     Dosage: 400 MG, QD (SCHEMA 21 DAYS INTAKE, 7 DAYS PAUSE)
     Route: 048
     Dates: start: 20220310, end: 20220727
  13. KISQALI [Suspect]
     Active Substance: RIBOCICLIB
     Dosage: 400 MG, QD (REGIMEN 21 DAYS INTAKE, 7 DAYS PAUSE)
     Route: 048
     Dates: start: 20220921
  14. BISOPROLOL [Concomitant]
     Active Substance: BISOPROLOL
     Indication: Hypertension
     Dosage: 5 MG, TID, A HALF TABLET THRICE A DAY
     Route: 048
     Dates: start: 1995
  15. Jonosteril [Concomitant]
     Indication: Product used for unknown indication
     Dosage: 1L, ONCE
     Route: 065
     Dates: start: 20220118
  16. Jonosteril [Concomitant]
     Dosage: 1000 MILLILITER
     Route: 065
     Dates: start: 20220301

REACTIONS (18)
  - Lipoma [Recovered/Resolved]
  - Concomitant disease aggravated [Recovered/Resolved with Sequelae]
  - Pain in extremity [Recovered/Resolved with Sequelae]
  - Pneumonia [Recovered/Resolved]
  - Thrombocytopenia [Recovered/Resolved]
  - Syncope [Recovered/Resolved]
  - Leukopenia [Recovered/Resolved]
  - Neutropenia [Not Recovered/Not Resolved]
  - Urge incontinence [Not Recovered/Not Resolved]
  - Anaemia [Not Recovered/Not Resolved]
  - Polydipsia [Not Recovered/Not Resolved]
  - Toothache [Recovered/Resolved]
  - Blood calcium decreased [Recovered/Resolved]
  - Blood creatinine increased [Not Recovered/Not Resolved]
  - Weight decreased [Not Recovered/Not Resolved]
  - Blood pressure increased [Recovering/Resolving]
  - Dizziness [Not Recovered/Not Resolved]
  - Oedema peripheral [Recovered/Resolved]

NARRATIVE: CASE EVENT DATE: 20200714
